FAERS Safety Report 6903787-9 (Version None)
Quarter: 2010Q3

REPORT INFORMATION
  Report Type: 
  Country: None (occurrence: None)
  Receive Date: 20100804
  Receipt Date: 20090105
  Transmission Date: 20110219
  Serious: No
  Sender: FDA-Public Use
  Company Number: US-PFIZER INC-2008096147

PATIENT
  Sex: Male
  Weight: 78.2 kg

DRUGS (4)
  1. LYRICA [Suspect]
     Indication: BURNING SENSATION
     Dates: start: 20080101
  2. COZAAR [Concomitant]
  3. GEMFIBROZIL [Concomitant]
  4. XALATAN [Concomitant]

REACTIONS (1)
  - CONSTIPATION [None]
